FAERS Safety Report 21255299 (Version 1)
Quarter: 2022Q3

REPORT INFORMATION
  Report Type: Spontaneous
  Country: PT (occurrence: PT)
  Receive Date: 20220825
  Receipt Date: 20220825
  Transmission Date: 20221026
  Serious: Yes (Hospitalization)
  Sender: FDA-Public Use
  Company Number: PT-MYLANLABS-2022M1088821

PATIENT
  Age: 77 Year
  Sex: Male

DRUGS (3)
  1. VANCOMYCIN [Suspect]
     Active Substance: VANCOMYCIN
     Indication: Staphylococcal infection
     Dosage: 1 GRAM, Q21D
     Route: 033
  2. VANCOMYCIN [Suspect]
     Active Substance: VANCOMYCIN
     Indication: Peritonitis bacterial
     Dosage: 1 GRAM
     Route: 033
  3. CEFTAZIDIME [Concomitant]
     Active Substance: CEFTAZIDIME
     Indication: Peritonitis
     Dosage: 1 GRAM
     Route: 033

REACTIONS (1)
  - Drug ineffective [Unknown]
